FAERS Safety Report 20205874 (Version 1)
Quarter: 2021Q4

REPORT INFORMATION
  Report Type: Spontaneous
  Country: US (occurrence: US)
  Receive Date: 20211220
  Receipt Date: 20211220
  Transmission Date: 20220304
  Serious: No
  Sender: FDA-Public Use
  Company Number: US-TEVA-2021-US-1986307

PATIENT
  Age: 37 Year
  Sex: Male

DRUGS (1)
  1. QVAR REDIHALER [Suspect]
     Active Substance: BECLOMETHASONE DIPROPIONATE
     Indication: Bronchitis
     Route: 065

REACTIONS (3)
  - Product use in unapproved indication [Unknown]
  - Blepharospasm [Unknown]
  - Hypertension [Unknown]
